FAERS Safety Report 12129064 (Version 1)
Quarter: 2016Q1

REPORT INFORMATION
  Report Type: Other
  Country: US (occurrence: US)
  Receive Date: 20160229
  Receipt Date: 20160229
  Transmission Date: 20160526
  Serious: No
  Sender: FDA-Public Use
  Company Number: US-ACORDA-ACO_119644_2015

PATIENT
  Age: 57 Year
  Sex: Male
  Weight: 83.9 kg

DRUGS (3)
  1. AMPYRA [Suspect]
     Active Substance: DALFAMPRIDINE
     Indication: GAIT DISTURBANCE
     Dosage: 10 MG, BID
     Route: 048
     Dates: start: 201503
  2. TECFIDERA [Suspect]
     Active Substance: DIMETHYL FUMARATE
     Indication: MULTIPLE SCLEROSIS
     Dosage: UNK
     Route: 048
     Dates: start: 2015
  3. AMPYRA [Suspect]
     Active Substance: DALFAMPRIDINE
     Indication: MUSCULAR WEAKNESS

REACTIONS (3)
  - Erythema [Recovered/Resolved]
  - Off label use [Unknown]
  - Flushing [Recovered/Resolved]

NARRATIVE: CASE EVENT DATE: 201511
